FAERS Safety Report 5260883-2 (Version None)
Quarter: 2007Q1

REPORT INFORMATION
  Report Type: 
  Country: None (occurrence: None)
  Receive Date: 20070309
  Receipt Date: 20070228
  Transmission Date: 20070707
  Serious: Yes (Other)
  Sender: FDA-Public Use
  Company Number: 2006UW26721

PATIENT
  Sex: Male
  Weight: 129.5 kg

DRUGS (11)
  1. SEROQUEL [Suspect]
     Indication: SCHIZOPHRENIA
     Route: 048
     Dates: end: 19990101
  2. SEROQUEL [Suspect]
     Indication: BIPOLAR I DISORDER
     Route: 048
     Dates: end: 19990101
  3. SEROQUEL [Suspect]
     Indication: DEPRESSION
     Route: 048
     Dates: end: 19990101
  4. SEROQUEL [Suspect]
     Route: 048
     Dates: start: 19990101, end: 20050101
  5. SEROQUEL [Suspect]
     Route: 048
     Dates: start: 19990101, end: 20050101
  6. SEROQUEL [Suspect]
     Route: 048
     Dates: start: 19990101, end: 20050101
  7. ABILIFY [Concomitant]
  8. HALDOL [Concomitant]
  9. RISPERDAL [Concomitant]
  10. THORAZINE [Concomitant]
  11. ZYPREXA [Concomitant]

REACTIONS (2)
  - DIABETES MELLITUS [None]
  - DIABETIC COMA [None]
